FAERS Safety Report 16016044 (Version 1)
Quarter: 2019Q1

REPORT INFORMATION
  Report Type: Report from Study
  Country: US (occurrence: US)
  Receive Date: 20190228
  Receipt Date: 20190228
  Transmission Date: 20190418
  Serious: No
  Sender: FDA-Public Use
  Company Number: US-IPSEN BIOPHARMACEUTICALS, INC.-2019-02776

PATIENT
  Sex: Female

DRUGS (1)
  1. SOMATULINE DEPOT [Suspect]
     Active Substance: LANREOTIDE ACETATE
     Indication: ACROMEGALY
     Dosage: UPPER OUTER BUTTOCKS, ROTATE SIDES
     Route: 058
     Dates: start: 201507, end: 201812

REACTIONS (2)
  - Weight decreased [Unknown]
  - Feeling abnormal [Unknown]
